FAERS Safety Report 10627929 (Version 2)
Quarter: 2014Q4

REPORT INFORMATION
  Report Type: Spontaneous
  Country: US (occurrence: US)
  Receive Date: 20141205
  Receipt Date: 20141205
  Transmission Date: 20150529
  Serious: No
  Sender: FDA-Public Use
  Company Number: US-BRISTOL-MYERS SQUIBB COMPANY-21284708

PATIENT
  Age: 8 Year
  Sex: Male
  Weight: 31.29 kg

DRUGS (4)
  1. ABILIFY DISCMELT [Suspect]
     Active Substance: ARIPIPRAZOLE
     Indication: AUTISM
     Route: 048
  2. ABILIFY [Suspect]
     Active Substance: ARIPIPRAZOLE
  3. TENEX [Concomitant]
     Active Substance: GUANFACINE HYDROCHLORIDE
  4. ABILIFY DISCMELT [Suspect]
     Active Substance: ARIPIPRAZOLE
     Indication: AGGRESSION
     Route: 048

REACTIONS (2)
  - Wrong technique in drug usage process [Unknown]
  - Mood swings [Unknown]
